FAERS Safety Report 20208892 (Version 1)
Quarter: 2021Q4

REPORT INFORMATION
  Report Type: Report from Study
  Country: US (occurrence: None)
  Receive Date: 20211220
  Receipt Date: 20211220
  Transmission Date: 20220304
  Serious: Yes (Other)
  Sender: FDA-Public Use
  Company Number: 2021A877366

PATIENT
  Sex: Female

DRUGS (2)
  1. TAGRISSO [Interacting]
     Active Substance: OSIMERTINIB
     Indication: Lung carcinoma cell type unspecified stage 0
     Dosage: 40 MG, EVERY OTHER DAY
     Route: 048
     Dates: start: 20210505
  2. AMIODARONE [Interacting]
     Active Substance: AMIODARONE
     Route: 065

REACTIONS (2)
  - Drug interaction [Unknown]
  - Electrocardiogram QT prolonged [Unknown]
